FAERS Safety Report 23948327 (Version 2)
Quarter: 2024Q2

REPORT INFORMATION
  Report Type: Spontaneous
  Country: JP (occurrence: JP)
  Receive Date: 20240607
  Receipt Date: 20240627
  Transmission Date: 20240716
  Serious: Yes (Other)
  Sender: FDA-Public Use
  Company Number: JP-ARGENX-2024-ARGX-JP003883

PATIENT

DRUGS (3)
  1. EFGARTIGIMOD ALFA [Suspect]
     Active Substance: EFGARTIGIMOD ALFA
     Indication: Myasthenia gravis
     Dosage: UNK
     Route: 042
  2. EFGARTIGIMOD ALFA [Suspect]
     Active Substance: EFGARTIGIMOD ALFA
     Dosage: UNK
     Route: 042
  3. EFGARTIGIMOD ALFA [Suspect]
     Active Substance: EFGARTIGIMOD ALFA
     Dosage: UNK
     Route: 042

REACTIONS (2)
  - Bulbar palsy [Recovered/Resolved]
  - Condition aggravated [Recovered/Resolved]

NARRATIVE: CASE EVENT DATE: 20240301
